FAERS Safety Report 8445726-8 (Version None)
Quarter: 2012Q2

REPORT INFORMATION
  Report Type: 
  Country: None (occurrence: None)
  Receive Date: 20120618
  Receipt Date: 20120608
  Transmission Date: 20120825
  Serious: Yes (Hospitalization)
  Sender: FDA-Public Use
  Company Number: ZA-GLAXOSMITHKLINE-B0640470A

PATIENT
  Sex: Female
  Weight: 68 kg

DRUGS (7)
  1. LAPATINIB [Suspect]
     Indication: BREAST CANCER
     Route: 048
     Dates: start: 20090630, end: 20100309
  2. TAMOXIFEN [Concomitant]
     Indication: HORMONE LEVEL ABNORMAL
     Dosage: 20MG PER DAY
     Route: 048
     Dates: start: 20091015
  3. METFORMIN HCL [Concomitant]
     Indication: DIABETES MELLITUS
     Dosage: 850MG TWICE PER DAY
     Route: 048
     Dates: start: 20090929
  4. TRASTUZUMAB [Suspect]
     Indication: BREAST CANCER
     Route: 042
     Dates: start: 20090630
  5. PACLITAXEL [Suspect]
     Indication: BREAST CANCER
     Dosage: 80MGM2 WEEKLY
     Route: 042
     Dates: start: 20090630
  6. METFORMIN HCL [Concomitant]
     Indication: DIABETES MELLITUS
     Dosage: 40MG PER DAY
     Route: 048
     Dates: start: 20090301
  7. PREXUM [Concomitant]
     Indication: HYPERTENSION
     Dosage: 1TAB PER DAY
     Route: 048
     Dates: start: 20090301

REACTIONS (6)
  - MEMORY IMPAIRMENT [None]
  - MYOCLONUS [None]
  - POSITIVE ROMBERGISM [None]
  - ATAXIA [None]
  - CEREBELLAR SYNDROME [None]
  - CEREBELLAR ATAXIA [None]
